FAERS Safety Report 16635146 (Version 2)
Quarter: 2019Q3

REPORT INFORMATION
  Report Type: Spontaneous
  Country: BR (occurrence: BR)
  Receive Date: 20190726
  Receipt Date: 20190906
  Transmission Date: 20191004
  Serious: Yes (Disabling, Other)
  Sender: FDA-Public Use
  Company Number: BR-GLAXOSMITHKLINE-BR2019133559

PATIENT
  Age: 63 Year
  Sex: Female

DRUGS (7)
  1. DECADRON (DEXAMETHASONE SODIUM PHOSPHATE + NEOMYCIN SULFATE) [Concomitant]
     Active Substance: DEXAMETHASONE SODIUM PHOSPHATE\NEOMYCIN SULFATE
     Indication: PRODUCT USED FOR UNKNOWN INDICATION
     Dosage: UNK
     Route: 065
  2. CINARIZINA [Concomitant]
     Indication: MUSCLE TWITCHING
     Dosage: UNK
     Route: 065
  3. VOLTAREN [Suspect]
     Active Substance: DICLOFENAC SODIUM
     Indication: SCIATICA
     Dosage: UNK
     Route: 065
  4. VOLTAREN [Suspect]
     Active Substance: DICLOFENAC SODIUM
     Indication: PAIN
     Dosage: UNK
     Route: 065
     Dates: start: 1998
  5. DIAZEPAM. [Concomitant]
     Active Substance: DIAZEPAM
     Indication: SLEEP DISORDER
     Dosage: UNK
     Route: 065
  6. BROMAZEPAM [Concomitant]
     Active Substance: BROMAZEPAM
     Indication: SLEEP DISORDER
     Dosage: UNK
     Route: 065
  7. CITONEURIN [Concomitant]
     Active Substance: CYANOCOBALAMIN\PYRIDOXINE HYDROCHLORIDE\THIAMINE
     Indication: PRODUCT USED FOR UNKNOWN INDICATION
     Dosage: UNK
     Route: 065

REACTIONS (32)
  - Tension [Unknown]
  - Muscle twitching [Unknown]
  - Weight decreased [Unknown]
  - Ligament rupture [Unknown]
  - Pollakiuria [Unknown]
  - Expired product administered [Unknown]
  - Flatulence [Unknown]
  - Gastric cancer [Unknown]
  - Hypotonia [Unknown]
  - Inflammation [Unknown]
  - Nausea [Recovered/Resolved]
  - Nervousness [Unknown]
  - Limb asymmetry [Unknown]
  - Dyspnoea [Unknown]
  - Malaise [Unknown]
  - Pain in extremity [Unknown]
  - Diarrhoea [Recovered/Resolved]
  - Chest pain [Unknown]
  - Sciatica [Unknown]
  - Constipation [Unknown]
  - Burning sensation [Unknown]
  - Feeling cold [Unknown]
  - Abdominal pain [Unknown]
  - Femur fracture [Unknown]
  - Cardiovascular disorder [Unknown]
  - Hypersensitivity [Unknown]
  - Diarrhoea [Not Recovered/Not Resolved]
  - Upper limb fracture [Unknown]
  - Viral infection [Recovered/Resolved]
  - Muscle disorder [Unknown]
  - Pain [Unknown]
  - Drug resistance [Unknown]

NARRATIVE: CASE EVENT DATE: 2004
